FAERS Safety Report 6814055-8 (Version None)
Quarter: 2010Q3

REPORT INFORMATION
  Report Type: 
  Country: None (occurrence: None)
  Receive Date: 20100702
  Receipt Date: 20100623
  Transmission Date: 20110219
  Serious: Yes (Death)
  Sender: FDA-Public Use
  Company Number: PHFR2010GB01090

PATIENT
  Weight: 100 kg

DRUGS (6)
  1. CLOZAPINE [Suspect]
     Dosage: UNK
     Dates: start: 20040818, end: 20081121
  2. ZAPONEX [Suspect]
     Dosage: UNK
     Route: 048
     Dates: start: 20081122, end: 20090201
  3. LEVETIRACETAM [Concomitant]
  4. MINOCYCLINE [Concomitant]
  5. MIRTAZAPINE [Concomitant]
  6. OMEPRAZOLE [Concomitant]

REACTIONS (2)
  - ACUTE PULMONARY OEDEMA [None]
  - EPILEPSY [None]
